FAERS Safety Report 5220903-8 (Version None)
Quarter: 2007Q1

REPORT INFORMATION
  Report Type: 
  Country: None (occurrence: None)
  Receive Date: 20070126
  Receipt Date: 20070119
  Transmission Date: 20070707
  Serious: Yes (Other)
  Sender: FDA-Public Use
  Company Number: DE-GLAXOSMITHKLINE-D0051465A

PATIENT
  Age: 47 Year
  Sex: Male

DRUGS (1)
  1. SEROXAT [Suspect]
     Dosage: 40MG PER DAY
     Route: 065
     Dates: start: 20060401

REACTIONS (7)
  - ASPARTATE AMINOTRANSFERASE INCREASED [None]
  - BLOOD AMYLASE INCREASED [None]
  - BLOOD CHOLESTEROL ABNORMAL [None]
  - BLOOD TRYPSIN INCREASED [None]
  - CARCINOEMBRYONIC ANTIGEN INCREASED [None]
  - DYSPEPSIA [None]
  - LIPASE INCREASED [None]
